FAERS Safety Report 15927578 (Version 1)
Quarter: 2019Q1

REPORT INFORMATION
  Report Type: Spontaneous
  Country: CA (occurrence: CA)
  Receive Date: 20190206
  Receipt Date: 20190206
  Transmission Date: 20190417
  Serious: Yes (Death)
  Sender: FDA-Public Use
  Company Number: CA-PFIZER INC-2017380006

PATIENT
  Age: 82 Year
  Sex: Female

DRUGS (17)
  1. ATENOLOL. [Concomitant]
     Active Substance: ATENOLOL
     Dosage: 100 MG, UNK
  2. VITAMIN D [Concomitant]
     Active Substance: CHOLECALCIFEROL
     Dosage: UNK
  3. MAGNESIUM [Concomitant]
     Active Substance: MAGNESIUM
     Dosage: UNK
  4. IBRANCE [Suspect]
     Active Substance: PALBOCICLIB
     Dosage: 100 MG, CYCLIC (3 WEEKS ON/1 WEEK OFF)
     Route: 048
     Dates: start: 20170829
  5. COENZYME [Concomitant]
     Active Substance: UBIDECARENONE
     Dosage: UNK
  6. AMLODIPINE [Concomitant]
     Active Substance: AMLODIPINE BESYLATE
     Dosage: 5 MG, UNK
  7. COPPER [Concomitant]
     Active Substance: COPPER
     Dosage: UNK
  8. IBRANCE [Suspect]
     Active Substance: PALBOCICLIB
     Dosage: 125 MG, CYCLIC (3 WEEKS ON/1 WEEK OFF)
     Route: 048
     Dates: start: 20170412
  9. CALCIUM [Concomitant]
     Active Substance: CALCIUM
     Dosage: UNK
  10. VITAMIN B COMPLEX [Concomitant]
     Active Substance: CYANOCOBALAMIN\DEXPANTHENOL\NIACINAMIDE\PYRIDOXINE HYDROCHLORIDE\RIBOFLAVIN 5^-PHOSPHATE SODIUM\THIAMINE HYDROCHLORIDE\VITAMIN B COMPLEX
     Dosage: UNK
  11. BROMOLIN [Concomitant]
     Dosage: UNK
  12. VITAMIN E [Concomitant]
     Active Substance: .ALPHA.-TOCOPHEROL
     Dosage: UNK
  13. GARLIC. [Concomitant]
     Active Substance: GARLIC
     Dosage: UNK (PILLS)
  14. LOSARTAN K [Concomitant]
     Active Substance: LOSARTAN POTASSIUM
     Dosage: 50 MG, UNK
  15. VITAMIN K [Concomitant]
     Active Substance: PHYTONADIONE
     Dosage: UNK
  16. LETROZOLE. [Concomitant]
     Active Substance: LETROZOLE
     Dosage: 2.5 MG, UNK
  17. ZINC. [Concomitant]
     Active Substance: ZINC
     Dosage: UNK

REACTIONS (1)
  - Death [Fatal]
